FAERS Safety Report 13850125 (Version 1)
Quarter: 2017Q3

REPORT INFORMATION
  Report Type: Report from Study
  Country: SG (occurrence: SG)
  Receive Date: 20170809
  Receipt Date: 20170809
  Transmission Date: 20171127
  Serious: Yes (Death)
  Sender: FDA-Public Use
  Company Number: SG-ASTRAZENECA-2017SE80510

PATIENT
  Age: 21576 Day
  Sex: Male

DRUGS (1)
  1. TAGRISSO [Suspect]
     Active Substance: OSIMERTINIB
     Indication: LUNG NEOPLASM MALIGNANT
     Route: 048
     Dates: start: 20161028

REACTIONS (3)
  - Blood sodium decreased [Fatal]
  - Malignant neoplasm progression [Fatal]
  - Pyrexia [Fatal]

NARRATIVE: CASE EVENT DATE: 20170705
